FAERS Safety Report 14920260 (Version 1)
Quarter: 2018Q2

REPORT INFORMATION
  Report Type: Spontaneous
  Country: US (occurrence: US)
  Receive Date: 20180502
  Receipt Date: 20180502
  Transmission Date: 20180711
  Serious: No
  Sender: FDA-Public Use
  Company Number: None

PATIENT
  Age: 7 Year
  Sex: Female
  Weight: 21.6 kg

DRUGS (2)
  1. FLUORIDE [Concomitant]
     Active Substance: SODIUM FLUORIDE
  2. MIRALAX [Suspect]
     Active Substance: POLYETHYLENE GLYCOL 3350
     Indication: CONSTIPATION
     Route: 048

REACTIONS (4)
  - Tic [None]
  - Anger [None]
  - Insomnia [None]
  - Aggression [None]
